FAERS Safety Report 10272489 (Version 1)
Quarter: 2014Q2

REPORT INFORMATION
  Report Type: Spontaneous
  Country: GB (occurrence: None)
  Receive Date: 20140627
  Receipt Date: 20140627
  Transmission Date: 20141212
  Serious: Yes (Disabling)
  Sender: FDA-Public Use
  Company Number: GB-DEXPHARM-20140364

PATIENT
  Age: 66 Year
  Sex: Female

DRUGS (6)
  1. OMEPRAZOLE [Suspect]
     Dates: start: 20140416
  2. CLARITHROMYCIN [Concomitant]
  3. DICLOFENAC [Concomitant]
  4. ESTRADIOL [Concomitant]
  5. FEXOFENADINE [Concomitant]
  6. LEVOTHYROXINE [Concomitant]

REACTIONS (1)
  - Arthralgia [None]
